FAERS Safety Report 7417679-2 (Version None)
Quarter: 2011Q2

REPORT INFORMATION
  Report Type: 
  Country: None (occurrence: None)
  Receive Date: 20110412
  Receipt Date: 20110412
  Transmission Date: 20111010
  Serious: Yes (Other)
  Sender: FDA-Public Use
  Company Number: None

PATIENT
  Age: 44 Year
  Sex: Female
  Weight: 68.4932 kg

DRUGS (2)
  1. RECLAST [Suspect]
     Indication: PROPHYLAXIS
     Dosage: ONCE INFUSION
     Dates: start: 20110106
  2. RECLAST [Suspect]
     Indication: BONE DISORDER
     Dosage: ONCE INFUSION
     Dates: start: 20110106

REACTIONS (7)
  - PAIN IN EXTREMITY [None]
  - IMPAIRED WORK ABILITY [None]
  - COUGH [None]
  - HEADACHE [None]
  - BACK PAIN [None]
  - MYALGIA [None]
  - ABDOMINAL PAIN UPPER [None]
